FAERS Safety Report 17017039 (Version 3)
Quarter: 2020Q2

REPORT INFORMATION
  Report Type: Report from Study
  Country: GB (occurrence: GB)
  Receive Date: 20191111
  Receipt Date: 20200410
  Transmission Date: 20200713
  Serious: Yes (Hospitalization)
  Sender: FDA-Public Use
  Company Number: GB-JNJFOC-20191048604

PATIENT
  Sex: Female

DRUGS (3)
  1. CITALOPRAM [Concomitant]
     Active Substance: CITALOPRAM HYDROBROMIDE
     Indication: ANXIETY
     Route: 048
  2. STELARA [Suspect]
     Active Substance: USTEKINUMAB
     Indication: PSORIASIS
     Route: 058
     Dates: start: 2013
  3. STELARA [Suspect]
     Active Substance: USTEKINUMAB

REACTIONS (3)
  - Psoriasis [Unknown]
  - Inappropriate schedule of product administration [Unknown]
  - Skin cancer [Unknown]

NARRATIVE: CASE EVENT DATE: 2019
